FAERS Safety Report 8271560-8 (Version None)
Quarter: 2012Q2

REPORT INFORMATION
  Report Type: 
  Country: None (occurrence: None)
  Receive Date: 20120410
  Receipt Date: 20120409
  Transmission Date: 20120825
  Serious: No
  Sender: FDA-Public Use
  Company Number: US-PFIZER INC-2012028833

PATIENT
  Sex: Female

DRUGS (1)
  1. ZOLOFT [Suspect]
     Dosage: 150 MG, 1X/DAY
     Route: 048

REACTIONS (1)
  - HYPERTENSION [None]
